FAERS Safety Report 24702251 (Version 1)
Quarter: 2024Q4

REPORT INFORMATION
  Report Type: Spontaneous
  Country: US (occurrence: None)
  Receive Date: 20241204
  Receipt Date: 20241204
  Transmission Date: 20250115
  Serious: Yes (Congenital Anomaly)
  Sender: Public
  Company Number: None

PATIENT
  Sex: Male
  Weight: 3 kg

DRUGS (1)
  1. LISINOPRIL [Suspect]
     Active Substance: LISINOPRIL
     Indication: Maternal hypertension affecting foetus

REACTIONS (9)
  - Teratogenicity [None]
  - Exposure during pregnancy [None]
  - Foetal exposure during delivery [None]
  - Oligohydramnios [None]
  - Congenital cystic kidney disease [None]
  - Foetal disorder [None]
  - Anuria [None]
  - Foetal renal imaging abnormal [None]
  - Pulmonary hypoplasia [None]

NARRATIVE: CASE EVENT DATE: 20241204
